FAERS Safety Report 8010692 (Version 8)
Quarter: 2013Q3

REPORT INFORMATION
  Report Type: Spontaneous
  Country: US (occurrence: US)
  Receive Date: 20110627
  Receipt Date: 20130819
  Transmission Date: 20140515
  Serious: Yes (Other)
  Sender: FDA-Public Use
  Company Number: PHEH2011US00506

PATIENT
  Sex: Male
  Weight: 79.82 kg

DRUGS (6)
  1. AREDIA [Suspect]
  2. ZOMETA [Suspect]
     Indication: BONE CANCER
     Route: 042
     Dates: start: 200611, end: 200906
  3. ZOMETA [Suspect]
     Dates: end: 200910
  4. AVALIDE [Concomitant]
  5. FLOMAX ^BOEHRINGER INGELHEIM^ [Concomitant]
     Dosage: UNK
     Dates: end: 200912
  6. LUPRON [Concomitant]
     Dosage: UNK
     Dates: end: 200907

REACTIONS (70)
  - Osteonecrosis of jaw [Unknown]
  - Pain [Unknown]
  - Injury [Unknown]
  - Infection [Unknown]
  - Disability [Unknown]
  - Deformity [Unknown]
  - Emotional distress [Unknown]
  - Swelling face [Unknown]
  - Gingival erythema [Unknown]
  - Gingival oedema [Unknown]
  - Cardiac murmur [Unknown]
  - Prostate cancer [Unknown]
  - Hypertension [Unknown]
  - Urinary tract obstruction [Unknown]
  - Renal failure [Recovered/Resolved]
  - Pleural effusion [Unknown]
  - Atelectasis [Unknown]
  - Prostatomegaly [Unknown]
  - Urinary retention [Unknown]
  - Hydronephrosis [Unknown]
  - Gastrointestinal oedema [Unknown]
  - Generalised oedema [Unknown]
  - Granulomatous liver disease [Unknown]
  - Splenic granuloma [Unknown]
  - Hepatic calcification [Unknown]
  - Splenic calcification [Unknown]
  - Bladder dilatation [Unknown]
  - Ascites [Unknown]
  - Bone disorder [Unknown]
  - Inflammation [Unknown]
  - Pathological fracture [Unknown]
  - Osteomyelitis chronic [Unknown]
  - Bone atrophy [Unknown]
  - Sinusitis [Unknown]
  - Hypoaesthesia [Unknown]
  - Paraesthesia [Unknown]
  - Soft tissue necrosis [Unknown]
  - Oral disorder [Unknown]
  - Osteolysis [Unknown]
  - Periodontal disease [Unknown]
  - Parotid gland enlargement [Unknown]
  - Benign prostatic hyperplasia [Unknown]
  - Hyperlipidaemia [Unknown]
  - Erectile dysfunction [Unknown]
  - Pleural fibrosis [Unknown]
  - Primary sequestrum [Unknown]
  - Prostate cancer metastatic [Unknown]
  - Arthritis [Unknown]
  - Exposed bone in jaw [Unknown]
  - Bladder outlet obstruction [Unknown]
  - Benign salivary gland neoplasm [Unknown]
  - Pleomorphic adenoma [Unknown]
  - Acidosis [Unknown]
  - Anaemia [Unknown]
  - Vitamin D deficiency [Unknown]
  - Nephrolithiasis [Unknown]
  - Kidney infection [Unknown]
  - Reflux nephropathy [Unknown]
  - Hypomagnesaemia [Unknown]
  - Dyspnoea [Unknown]
  - Oropharyngeal pain [Unknown]
  - Cough [Unknown]
  - Diarrhoea [Unknown]
  - Nausea [Unknown]
  - Vomiting [Unknown]
  - Hyperkalaemia [Recovered/Resolved]
  - Asthenia [Unknown]
  - Flank pain [Unknown]
  - Abdominal pain [Unknown]
  - Dermatitis [Unknown]
